FAERS Safety Report 5807690-7 (Version None)
Quarter: 2008Q3

REPORT INFORMATION
  Report Type: 
  Country: None (occurrence: None)
  Receive Date: 20080711
  Receipt Date: 20080703
  Transmission Date: 20090109
  Serious: Yes (Death)
  Sender: FDA-Public Use
  Company Number: US-GENENTECH-264105

PATIENT
  Age: 49 Year
  Sex: Male

DRUGS (1)
  1. RAPTIVA [Suspect]
     Indication: SKIN DISORDER

REACTIONS (3)
  - CHEST PAIN [None]
  - HYPERTROPHIC CARDIOMYOPATHY [None]
  - VENTRICULAR FIBRILLATION [None]
